FAERS Safety Report 4771894-5 (Version None)
Quarter: 2005Q3

REPORT INFORMATION
  Report Type: 
  Country: None (occurrence: None)
  Receive Date: 20050916
  Receipt Date: 20050908
  Transmission Date: 20060218
  Serious: Yes (Hospitalization, Other)
  Sender: FDA-Public Use
  Company Number: JP-JNJFOC-20050806658

PATIENT
  Age: 79 Year
  Sex: Male

DRUGS (2)
  1. TAVANIC [Suspect]
     Indication: RESPIRATORY TRACT INFECTION
     Route: 065
     Dates: start: 20050715, end: 20050725
  2. ASPIRIN [Concomitant]
     Route: 048

REACTIONS (3)
  - MYALGIA [None]
  - MYOPATHY [None]
  - RHABDOMYOLYSIS [None]
